FAERS Safety Report 6260256-X (Version None)
Quarter: 2009Q3

REPORT INFORMATION
  Report Type: 
  Country: None (occurrence: None)
  Receive Date: 20090708
  Receipt Date: 20090626
  Transmission Date: 20100115
  Serious: Yes (Other)
  Sender: FDA-Public Use
  Company Number: DK-ASTRAZENECA-2009SE01694

PATIENT
  Age: 4906 Day
  Sex: Female
  Weight: 60 kg

DRUGS (2)
  1. SPIROCORT [Suspect]
     Indication: ASTHMA
     Route: 055
     Dates: start: 19960101
  2. OXIS [Concomitant]
     Indication: ASTHMA
     Route: 055
     Dates: start: 19980101

REACTIONS (5)
  - BREAST ENLARGEMENT [None]
  - HORMONE LEVEL ABNORMAL [None]
  - LIPODYSTROPHY ACQUIRED [None]
  - MENSTRUAL DISORDER [None]
  - SKIN STRIAE [None]
